FAERS Safety Report 6288298-9 (Version None)
Quarter: 2009Q3

REPORT INFORMATION
  Report Type: 
  Country: None (occurrence: None)
  Receive Date: 20090729
  Receipt Date: 20090723
  Transmission Date: 20100115
  Serious: Yes (Other)
  Sender: FDA-Public Use
  Company Number: US-ASTRAZENECA-2009SE05841

PATIENT
  Age: 67 Year
  Sex: Male

DRUGS (1)
  1. TOPROL-XL [Suspect]
     Indication: MIGRAINE
     Route: 048

REACTIONS (1)
  - CHRONIC OBSTRUCTIVE PULMONARY DISEASE [None]
